FAERS Safety Report 6504764-2 (Version None)
Quarter: 2009Q4

REPORT INFORMATION
  Report Type: 
  Country: None (occurrence: None)
  Receive Date: 20091215
  Receipt Date: 20091203
  Transmission Date: 20100525
  Serious: Yes (Hospitalization)
  Sender: FDA-Public Use
  Company Number: WAES 0404DEU00141

PATIENT
  Age: 63 Year
  Sex: Male

DRUGS (12)
  1. COZAAR [Suspect]
     Indication: CARDIAC FAILURE CONGESTIVE
     Dosage: 150 MG DAILY PO
     Route: 048
     Dates: start: 20031124, end: 20040409
  2. SPIRONOLACTONE [Suspect]
     Indication: CARDIAC FAILURE CONGESTIVE
     Dosage: 50 MG DAILY PO, 100 MG DAILY PO, 75 MG DAILY PO
     Route: 048
     Dates: start: 20030327, end: 20040119
  3. SPIRONOLACTONE [Suspect]
     Indication: CARDIAC FAILURE CONGESTIVE
     Dosage: 50 MG DAILY PO, 100 MG DAILY PO, 75 MG DAILY PO
     Route: 048
     Dates: start: 20040120, end: 20040210
  4. SPIRONOLACTONE [Suspect]
     Indication: CARDIAC FAILURE CONGESTIVE
     Dosage: 50 MG DAILY PO, 100 MG DAILY PO, 75 MG DAILY PO
     Route: 048
     Dates: start: 20040211, end: 20040311
  5. SPIRONOLACTONE [Suspect]
     Indication: CARDIAC FAILURE CONGESTIVE
     Dosage: 50 MG DAILY PO, 100 MG DAILY PO, 75 MG DAILY PO
     Route: 048
     Dates: start: 20040312, end: 20040401
  6. ALLOPURINOL [Concomitant]
  7. BISOPROLOL [Concomitant]
  8. FUROSEMIDE [Concomitant]
  9. MOXONIDINE [Concomitant]
  10. NISOLDIPINE [Concomitant]
  11. TORSEMIDE [Concomitant]
  12. XIPAMIDE [Concomitant]

REACTIONS (17)
  - AORTIC VALVE INCOMPETENCE [None]
  - AORTIC VALVE SCLEROSIS [None]
  - ARTERIOSCLEROSIS CORONARY ARTERY [None]
  - BLOOD CREATININE INCREASED [None]
  - BLOOD PRESSURE FLUCTUATION [None]
  - BLOOD UREA INCREASED [None]
  - BRADYCARDIA [None]
  - CAROTID ARTERIOSCLEROSIS [None]
  - COLD SWEAT [None]
  - DIZZINESS [None]
  - DRUG INTERACTION [None]
  - DYSPNOEA EXERTIONAL [None]
  - EXERCISE TOLERANCE DECREASED [None]
  - EXTRASYSTOLES [None]
  - HYPERKALAEMIA [None]
  - PALPITATIONS [None]
  - SICK SINUS SYNDROME [None]
